FAERS Safety Report 4843227-7 (Version None)
Quarter: 2005Q4

REPORT INFORMATION
  Report Type: 
  Country: None (occurrence: None)
  Receive Date: 20051027
  Receipt Date: 20041206
  Transmission Date: 20060501
  Serious: Yes (Hospitalization)
  Sender: FDA-Public Use
  Company Number: HQWYE786007DEC04

PATIENT
  Age: 67 Year
  Sex: Female
  Weight: 133.93 kg

DRUGS (1)
  1. PREMARIN [Suspect]
     Indication: MENOPAUSE
     Dosage: 0.625 MG DAILY, ORAL
     Route: 048
     Dates: start: 19740101

REACTIONS (2)
  - MEMORY IMPAIRMENT [None]
  - MYOCARDIAL INFARCTION [None]
